FAERS Safety Report 8341496-2 (Version None)
Quarter: 2012Q2

REPORT INFORMATION
  Report Type: 
  Country: None (occurrence: None)
  Receive Date: 20120507
  Receipt Date: 20100118
  Transmission Date: 20120825
  Serious: No
  Sender: FDA-Public Use
  Company Number: US-TEVA-2010000241

PATIENT
  Sex: Male
  Weight: 90.8 kg

DRUGS (4)
  1. CYMBALTA [Concomitant]
  2. TREANDA [Suspect]
     Indication: NON-HODGKIN'S LYMPHOMA
     Route: 042
     Dates: start: 20091020
  3. TRAZODONE HCL [Concomitant]
  4. RITUXIMAB [Concomitant]
     Dates: start: 20091001

REACTIONS (6)
  - INFUSION SITE REACTION [None]
  - RASH [None]
  - NAUSEA [None]
  - ABNORMAL DREAMS [None]
  - PAIN [None]
  - GENERAL PHYSICAL CONDITION ABNORMAL [None]
